FAERS Safety Report 24956550 (Version 1)
Quarter: 2025Q1

REPORT INFORMATION
  Report Type: Spontaneous
  Country: GB (occurrence: GB)
  Receive Date: 20250211
  Receipt Date: 20250211
  Transmission Date: 20250409
  Serious: Yes (Disabling, Other)
  Sender: TEVA
  Company Number: GB-MHRA-TPP15779145C2404319YC1738593520052

PATIENT
  Age: 81 Year
  Sex: Male
  Weight: 81 kg

DRUGS (14)
  1. TRIMETHOPRIM [Suspect]
     Active Substance: TRIMETHOPRIM
     Indication: Ill-defined disorder
     Dosage: TAKE ONE TWICE DAILY FOR7 DAYS, TO TREAT URINE ...
     Route: 065
     Dates: start: 20250131
  2. AMITRIPTYLINE HYDROCHLORIDE [Concomitant]
     Active Substance: AMITRIPTYLINE HYDROCHLORIDE
     Indication: Ill-defined disorder
     Dosage: TAKE ONE AT NIGHT WHEN REQUIRED
     Route: 065
     Dates: start: 20240913
  3. TRAMADOL [Concomitant]
     Active Substance: TRAMADOL
     Indication: Ill-defined disorder
     Dosage: ONE OR TWO FOUR TIMES A DAY IF NEEDED FOR FOR PAIN
     Route: 065
     Dates: start: 20240913
  4. FEXOFENADINE [Concomitant]
     Active Substance: FEXOFENADINE HYDROCHLORIDE
     Indication: Ill-defined disorder
     Dosage: TAKE ONE DAILY
     Route: 065
     Dates: start: 20250203
  5. ACETAMINOPHEN [Concomitant]
     Active Substance: ACETAMINOPHEN
     Indication: Ill-defined disorder
     Dosage: TAKE  TWO UP TO FOUR TIMES A DAY IF REQUIRED FO...
     Route: 065
     Dates: start: 20240913
  6. LACTULOSE [Concomitant]
     Active Substance: LACTULOSE
     Indication: Ill-defined disorder
     Dosage: 10 -20ML DAILY
     Route: 065
     Dates: start: 20240913
  7. METFORMIN [Concomitant]
     Active Substance: METFORMIN HYDROCHLORIDE
     Indication: Ill-defined disorder
     Dosage: ONE TO BE TAKEN DAILY
     Route: 065
     Dates: start: 20240913
  8. LANSOPRAZOLE [Concomitant]
     Active Substance: LANSOPRAZOLE
     Indication: Ill-defined disorder
     Dosage: TAKE ONE CAPSULES IN THE MORNING WHEN REQUIRED,...
     Route: 065
     Dates: start: 20240913
  9. LANOLIN\LIGHT MINERAL OIL\PARAFFIN [Concomitant]
     Active Substance: LANOLIN\LIGHT MINERAL OIL\PARAFFIN
     Indication: Ill-defined disorder
     Dosage: APPLY TWICE DAILY
     Route: 065
     Dates: start: 20240913, end: 20250108
  10. TAMSULOSIN HYDROCHLORIDE [Concomitant]
     Active Substance: TAMSULOSIN HYDROCHLORIDE
     Indication: Ill-defined disorder
     Dosage: TAKE ONE DAILY
     Route: 065
     Dates: start: 20240913
  11. NITROFURANTOIN [Concomitant]
     Active Substance: NITROFURANTOIN
     Indication: Ill-defined disorder
     Dosage: TAKE ONE BD FOR 7 DAYS
     Route: 065
     Dates: start: 20250203
  12. SIMVASTATIN [Concomitant]
     Active Substance: SIMVASTATIN
     Indication: Ill-defined disorder
     Dosage: TAKE ONE AT NIGHT
     Route: 065
     Dates: start: 20240913
  13. ACIDEX ADVANCE [Concomitant]
     Indication: Ill-defined disorder
     Dosage: 10MLS AT NIGHT
     Route: 065
     Dates: start: 20240913
  14. DYMISTA [Concomitant]
     Active Substance: AZELASTINE HYDROCHLORIDE\FLUTICASONE PROPIONATE
     Indication: Ill-defined disorder
     Dosage: ONE PUFF TWICE DAILY
     Route: 065
     Dates: start: 20240913

REACTIONS (2)
  - Rash [Recovered/Resolved]
  - Swelling face [Unknown]
